FAERS Safety Report 8758841 (Version 3)
Quarter: 2012Q4

REPORT INFORMATION
  Report Type: 
  Country: JP (occurrence: JP)
  Receive Date: 20120829
  Receipt Date: 20121218
  Transmission Date: 20130627
  Serious: Yes (Hospitalization, Other)
  Sender: FDA-Public Use
  Company Number: PHHY2012JP066444

PATIENT
  Age: 78 Year
  Sex: Male

DRUGS (6)
  1. EQUA [Suspect]
     Indication: TYPE 2 DIABETES MELLITUS
     Dosage: 100 mg, daily in 2 divided doses
     Route: 048
     Dates: start: 20111114, end: 20120629
  2. EQUA [Suspect]
     Dosage: 100 mg, daily in 2 divided doses
     Route: 048
     Dates: start: 20120715, end: 20120803
  3. DIOVAN [Suspect]
     Dosage: 80 mg, daily
     Route: 048
  4. CO-DIOVAN [Suspect]
     Route: 048
  5. CALBLOCK [Suspect]
     Route: 048
  6. AMARYL [Concomitant]
     Dosage: 1 mg, UNK
     Route: 048

REACTIONS (6)
  - Jaundice [Unknown]
  - Pancreatitis [Recovered/Resolved]
  - Abdominal pain [Unknown]
  - Cholelithiasis [Unknown]
  - Blood glucose increased [Unknown]
  - Glycosylated haemoglobin increased [Unknown]
